FAERS Safety Report 23471869 (Version 1)
Quarter: 2024Q1

REPORT INFORMATION
  Report Type: Spontaneous
  Country: ZA (occurrence: ZA)
  Receive Date: 20240202
  Receipt Date: 20240202
  Transmission Date: 20240410
  Serious: Yes (Death)
  Sender: FDA-Public Use
  Company Number: ZA-ABBOTT-2024A-1377090

PATIENT
  Age: 65 Year
  Sex: Male

DRUGS (8)
  1. CREON [Suspect]
     Active Substance: PANCRELIPASE AMYLASE\PANCRELIPASE LIPASE\PANCRELIPASE PROTEASE
     Indication: Product used for unknown indication
     Dosage: CREON 10000 (PANCREATIN) 150 MG TAKE ONE CAPSULE WITH EACH SNACK
     Route: 048
  2. PANTOCID [Concomitant]
     Indication: Ulcer
     Dosage: PANTOCID (PANTOPRAZOL) 40 MG TAKE ONE TABLET DAILY
     Route: 048
  3. SERDEP [Concomitant]
     Indication: Depression
     Dosage: SERDEP(SERTRALINE) 100 MG TAKE ONE TABLET AT NIGHT
     Route: 048
  4. STILPANE [Concomitant]
     Indication: Pain
     Dosage: STILPANE (PARACETAMOL AND CODINE) TAKE TWO?TABLETS THREE TIMES A DAY
     Route: 048
  5. ETIFOXINE [Concomitant]
     Active Substance: ETIFOXINE
     Indication: Anxiety
     Dosage: STRESAM (ETIFOXINE) 50 MG TAKE ONE CAPSULE ?TWICE A DAY
     Route: 048
  6. TRESIBA [Concomitant]
     Active Substance: INSULIN DEGLUDEC
     Indication: Diabetes mellitus
     Dosage: TRESIBA FLEXTOUCH (INSULIN DEGLUDEC) 100 IU INJECT 6 UNITS DAILY
     Route: 058
  7. PALEXIA [Concomitant]
     Active Substance: TAPENTADOL HYDROCHLORIDE
     Indication: Pain
     Dosage: PALEXIA (TAPENTADOL) 50 MG TAKE ONE TABLET FOUR TIMES A DAY
     Route: 048
  8. URISPAS [Concomitant]
     Active Substance: FLAVOXATE HYDROCHLORIDE
     Indication: Hypertonic bladder
     Dosage: URISPAS (FLAVOXATE HYDROCHLORIDE)200 MG?TAKE ONE TABLET THREE TIMES A DAY
     Route: 048

REACTIONS (1)
  - Death [Fatal]
